FAERS Safety Report 15353610 (Version 4)
Quarter: 2025Q3

REPORT INFORMATION
  Report Type: Spontaneous
  Country: EU (occurrence: EU)
  Receive Date: 20180905
  Receipt Date: 20250730
  Transmission Date: 20251021
  Serious: Yes (Death, Hospitalization, Other)
  Sender: PFIZER
  Company Number: EU-ASTRAZENECA-2017SE09821

PATIENT
  Age: 67 Year
  Sex: Male

DRUGS (11)
  1. CARBOPLATIN [Suspect]
     Active Substance: CARBOPLATIN
     Indication: Bladder transitional cell carcinoma
     Route: 042
     Dates: start: 20170105, end: 20170302
  2. GEMCITABINE HYDROCHLORIDE [Suspect]
     Active Substance: GEMCITABINE HYDROCHLORIDE
     Indication: Bladder transitional cell carcinoma
     Route: 042
     Dates: start: 20170105, end: 20170302
  3. GEMCITABINE HYDROCHLORIDE [Suspect]
     Active Substance: GEMCITABINE HYDROCHLORIDE
     Route: 042
     Dates: start: 20151223, end: 20160316
  4. DURVALUMAB [Suspect]
     Active Substance: DURVALUMAB
     Indication: Bladder transitional cell carcinoma
     Dosage: 1500 MG, EVERY 4 WEEKS, DURATION OF DRUG ADMINISTRATION: 60MIN
     Route: 042
     Dates: start: 20161201, end: 20161201
  5. DURVALUMAB [Suspect]
     Active Substance: DURVALUMAB
     Dosage: 1500 MG, EVERY 4 WEEKS
     Route: 042
     Dates: end: 20170104
  6. FENTANYL [Concomitant]
     Active Substance: FENTANYL
     Indication: Groin pain
     Dosage: 1 G, 3X/DAY, (150.000 UG,EVERY 72 H)
     Route: 048
     Dates: start: 20161219
  7. HYDROCHLOROTHIAZIDE [Concomitant]
     Active Substance: HYDROCHLOROTHIAZIDE
     Indication: Hypertension
     Dosage: 50 MG, 1X/DAY (QD)
     Route: 048
  8. OMEPRAZOLE [Concomitant]
     Active Substance: OMEPRAZOLE
     Indication: Pain
     Dosage: 1.000 G, 3X/DAY
     Route: 048
  9. ACETAMINOPHEN [Concomitant]
     Active Substance: ACETAMINOPHEN
     Indication: Groin pain
     Dosage: 1 G, 3X/DAY
     Route: 048
  10. IBUPROFEN [Concomitant]
     Active Substance: IBUPROFEN
     Indication: Groin pain
     Dosage: 600 MG, 3X/DAY
     Route: 048
     Dates: start: 20161219
  11. SIMVASTATIN [Concomitant]
     Active Substance: SIMVASTATIN
     Indication: Hypercholesterolaemia
     Dosage: 10.000 MG, EVERY DAY
     Route: 048

REACTIONS (4)
  - Bladder cancer [Fatal]
  - Malignant neoplasm progression [Fatal]
  - Neutropenic sepsis [Recovered/Resolved]
  - Pancytopenia [Recovered/Resolved]

NARRATIVE: CASE EVENT DATE: 20170118
